FAERS Safety Report 22203407 (Version 1)
Quarter: 2023Q2

REPORT INFORMATION
  Report Type: Spontaneous
  Country: US (occurrence: US)
  Receive Date: 20230412
  Receipt Date: 20230412
  Transmission Date: 20230721
  Serious: Yes (Other)
  Sender: FDA-Public Use
  Company Number: US-KASDIRECT-2023-US-008234

PATIENT
  Age: 28 Year
  Sex: Female
  Weight: 76.66 kg

DRUGS (1)
  1. KIDS SPF 50 PLUS SUNSCREEN [Suspect]
     Active Substance: OCTISALATE\TITANIUM DIOXIDE\ZINC OXIDE
     Indication: Product used for unknown indication
     Dosage: APPLIED PRODUCT TO EXPOSED SKIN EVERY 30 MIN
     Route: 061
     Dates: start: 20230330, end: 20230330

REACTIONS (8)
  - Burns second degree [Recovering/Resolving]
  - Skin exfoliation [Recovering/Resolving]
  - Blister [Recovering/Resolving]
  - Erythema [Recovering/Resolving]
  - Skin discolouration [Recovering/Resolving]
  - Drug ineffective [Recovered/Resolved]
  - Chemical burn [Recovering/Resolving]
  - Sunburn [Recovering/Resolving]

NARRATIVE: CASE EVENT DATE: 20230330
